FAERS Safety Report 4728334-1 (Version None)
Quarter: 2005Q3

REPORT INFORMATION
  Report Type: 
  Country: None (occurrence: None)
  Receive Date: 20050727
  Receipt Date: 20050610
  Transmission Date: 20060218
  Serious: Yes (Death, Other)
  Sender: FDA-Public Use
  Company Number: 2004083654

PATIENT
  Age: 61 Year
  Sex: Female
  Weight: 68.0396 kg

DRUGS (13)
  1. NEURONTIN [Suspect]
     Indication: BACK PAIN
     Dosage: (600 MG), ORAL
     Route: 048
     Dates: start: 19970101
  2. NEURONTIN [Suspect]
     Indication: OSTEOARTHRITIS
     Dosage: (600 MG), ORAL
     Route: 048
     Dates: start: 19970101
  3. ALCOHOL (ETHANOL) [Suspect]
     Indication: ILL-DEFINED DISORDER
  4. DIAZEPAM [Suspect]
     Indication: ILL-DEFINED DISORDER
     Dosage: 15 MG (5 MG, 3 IN 1 D)
  5. OXYCODONE (OXYCODONE) [Suspect]
     Indication: ILL-DEFINED DISORDER
     Dosage: 7.5 MG
  6. PRANDIN [Concomitant]
  7. LIDODERM (LIDOCAINE) [Concomitant]
  8. VERAPAMIL [Concomitant]
  9. HYDROCHLOROTHIAZIDE/TRIAMTERE (HYDROCHLOROTHIAZIDE TRIAMTERENE) [Concomitant]
  10. CLONIDINE [Concomitant]
  11. AMBIEN [Concomitant]
  12. NEXIUM [Concomitant]
  13. OXYCONTIN [Concomitant]

REACTIONS (14)
  - ANXIETY [None]
  - COMPLETED SUICIDE [None]
  - CORONARY ARTERY ATHEROSCLEROSIS [None]
  - DEPRESSION [None]
  - DRUG TOXICITY [None]
  - EMOTIONAL DISTRESS [None]
  - GAIT DISTURBANCE [None]
  - INJURY [None]
  - INTENTIONAL MISUSE [None]
  - MULTIPLE DRUG OVERDOSE [None]
  - NERVOUS SYSTEM DISORDER [None]
  - PAIN [None]
  - SUICIDAL IDEATION [None]
  - VASCULAR CALCIFICATION [None]
